FAERS Safety Report 8820619 (Version 1)
Quarter: 2012Q4

REPORT INFORMATION
  Report Type: Report from Study
  Country: US (occurrence: US)
  Receive Date: 20121002
  Receipt Date: 20121002
  Transmission Date: 20130627
  Serious: Yes (Other)
  Sender: FDA-Public Use
  Company Number: US-JNJFOC-20120910974

PATIENT

DRUGS (1)
  1. GOLIMUMAB [Suspect]
     Indication: PSORIASIS
     Route: 058
     Dates: start: 200908, end: 20100416

REACTIONS (1)
  - Adverse event [Unknown]
